FAERS Safety Report 23181092 (Version 1)
Quarter: 2023Q4

REPORT INFORMATION
  Report Type: Spontaneous
  Country: DE (occurrence: DE)
  Receive Date: 20231114
  Receipt Date: 20231114
  Transmission Date: 20240110
  Serious: Yes (Life-Threatening, Hospitalization, Other)
  Sender: FDA-Public Use
  Company Number: None

PATIENT
  Sex: Male
  Weight: 94 kg

DRUGS (1)
  1. OXALIPLATIN [Suspect]
     Active Substance: OXALIPLATIN
     Indication: Rectal cancer
     Dosage: 136 MG
     Route: 042

REACTIONS (4)
  - Urinary incontinence [Recovering/Resolving]
  - Oxygen saturation decreased [Recovering/Resolving]
  - Anaphylactic reaction [Recovering/Resolving]
  - Product substitution issue [Unknown]
